FAERS Safety Report 11514385 (Version 1)
Quarter: 2015Q3

REPORT INFORMATION
  Report Type: Spontaneous
  Country: US (occurrence: US)
  Receive Date: 20150916
  Receipt Date: 20150916
  Transmission Date: 20151125
  Serious: Yes (Hospitalization)
  Sender: FDA-Public Use
  Company Number: US-PFIZER INC-2015296789

PATIENT
  Age: 95 Year
  Sex: Female

DRUGS (1)
  1. ADVIL [Suspect]
     Active Substance: IBUPROFEN
     Dosage: UNK
     Route: 048

REACTIONS (5)
  - Cough [Unknown]
  - Pharyngo-oesophageal diverticulum [Unknown]
  - Suicide attempt [Unknown]
  - Regurgitation [Unknown]
  - Dysphagia [Unknown]
